FAERS Safety Report 5277988-2 (Version None)
Quarter: 2007Q1

REPORT INFORMATION
  Report Type: 
  Country: None (occurrence: None)
  Receive Date: 20070321
  Receipt Date: 20070314
  Transmission Date: 20070707
  Serious: Yes (Hospitalization)
  Sender: FDA-Public Use
  Company Number: LTI2007A00055

PATIENT
  Age: 94 Year
  Sex: Female

DRUGS (6)
  1. OGAST 15 MG (LANSOPRAZOLE) (CAPSULES) [Suspect]
     Dosage: 15 MG (15 MG, 1 IN 1 D) ORAL
     Route: 048
  2. PREVISCAN (FLUINDIONE) (TABLETS) [Suspect]
     Dosage: UNK (1 IN 1 D) ORAL
     Route: 048
  3. LIPANTHYL (FENOFIBRATE) (TABLETS) [Suspect]
     Dosage: 67 MG (67 MG, 1 IN 1 D) ORAL
     Route: 048
  4. LASILIX (FUROSEMIDE) (TABLETS) [Concomitant]
  5. ALPRESS (PRAZOSIN HYDROCHLORIDE) (TABLETS) [Concomitant]
  6. HYPERIUM (RILMENIDINE) (TABLETS) [Concomitant]

REACTIONS (5)
  - DRUG INTERACTION [None]
  - FALL [None]
  - HAEMATOMA [None]
  - INTERNATIONAL NORMALISED RATIO INCREASED [None]
  - PROTHROMBIN LEVEL DECREASED [None]
